FAERS Safety Report 8923795 (Version 1)
Quarter: 2012Q4

REPORT INFORMATION
  Report Type: Report from Study
  Country: US (occurrence: US)
  Receive Date: 20121126
  Receipt Date: 20121126
  Transmission Date: 20130627
  Serious: Yes (Hospitalization)
  Sender: FDA-Public Use
  Company Number: US-009507513-1211USA008780

PATIENT
  Age: 60 Year
  Sex: Male
  Weight: 97.5 kg

DRUGS (15)
  1. TEMODAR [Suspect]
     Indication: GLIOBLASTOMA
     Dosage: 75 mg/m2, UNK
     Route: 048
     Dates: start: 20100412, end: 20100523
  2. BEVACIZUMAB [Suspect]
     Indication: GLIOBLASTOMA
     Dosage: 10 mg/kg, UNK
     Dates: start: 20100424, end: 20100803
  3. BEVACIZUMAB [Suspect]
     Dosage: 10 mg/kg, UNK
     Dates: end: 20100816
  4. TARCEVA [Suspect]
     Indication: GLIOBLASTOMA
     Dosage: 150 mg, UNK
     Route: 048
     Dates: start: 20100412, end: 20100713
  5. TARCEVA [Suspect]
     Dosage: 100 mg, UNK
     Route: 048
     Dates: start: 20100726, end: 20100811
  6. CLINDAMYCIN [Concomitant]
     Dosage: UNK
     Dates: start: 20100427
  7. IMODIUM [Concomitant]
     Dosage: UNK
     Dates: start: 20100510
  8. PROCTOSOL [Concomitant]
     Dosage: UNK
     Dates: start: 20100512
  9. ZOFRAN [Concomitant]
     Dosage: UNK
     Dates: start: 20100414
  10. PEPCID [Concomitant]
     Dosage: UNK
     Dates: start: 20100608
  11. VITAMINS (UNSPECIFIED) [Concomitant]
     Dosage: UNK
     Dates: start: 2000
  12. VITAMIN D (UNSPECIFIED) [Concomitant]
     Dosage: UNK
     Dates: start: 201003
  13. PROBIOTICS (UNSPECIFIED) [Concomitant]
     Dosage: UNK
     Dates: start: 201004
  14. TYLENOL [Concomitant]
  15. RITALIN [Concomitant]
     Dosage: UNK
     Dates: start: 20100803

REACTIONS (2)
  - Vomiting [Not Recovered/Not Resolved]
  - Mucosal inflammation [Not Recovered/Not Resolved]
